FAERS Safety Report 6836717-9 (Version None)
Quarter: 2010Q3

REPORT INFORMATION
  Report Type: 
  Country: None (occurrence: None)
  Receive Date: 20100713
  Receipt Date: 20100628
  Transmission Date: 20110219
  Serious: No
  Sender: FDA-Public Use
  Company Number: US-PFIZER INC-2009164639

PATIENT
  Sex: Female
  Weight: 58.967 kg

DRUGS (7)
  1. ALPRAZOLAM [Suspect]
     Indication: ANXIETY
     Dosage: 1 MG, 3X/DAY
     Route: 048
     Dates: start: 20030411
  2. ALPRAZOLAM [Suspect]
     Indication: AGORAPHOBIA
     Dosage: UNK
  3. ALPRAZOLAM [Suspect]
     Indication: PANIC DISORDER
  4. ALPRAZOLAM [Suspect]
     Indication: TREMOR
  5. XANAX [Suspect]
     Indication: AGORAPHOBIA
     Dosage: 1 MG, 3X/DAY
     Route: 048
     Dates: start: 20030401
  6. XANAX [Suspect]
     Indication: ANXIETY
  7. XANAX [Suspect]
     Indication: PANIC DISORDER

REACTIONS (14)
  - DEPRESSION [None]
  - DIARRHOEA [None]
  - DRUG INEFFECTIVE [None]
  - FATIGUE [None]
  - FEELING JITTERY [None]
  - HEADACHE [None]
  - INSOMNIA [None]
  - NAUSEA [None]
  - NERVOUSNESS [None]
  - RESTLESSNESS [None]
  - SEDATION [None]
  - SOMNOLENCE [None]
  - TREMOR [None]
  - WITHDRAWAL SYNDROME [None]
